FAERS Safety Report 24724128 (Version 1)
Quarter: 2024Q4

REPORT INFORMATION
  Report Type: Spontaneous
  Country: GB (occurrence: GB)
  Receive Date: 20241211
  Receipt Date: 20241211
  Transmission Date: 20250114
  Serious: Yes (Other)
  Sender: TEVA
  Company Number: GB-SANDOZ-SDZ2024GB098883

PATIENT

DRUGS (1)
  1. EZETIMIBE [Suspect]
     Active Substance: EZETIMIBE
     Indication: Product used for unknown indication
     Dosage: UNK
     Route: 065
     Dates: start: 20240924

REACTIONS (4)
  - Loss of personal independence in daily activities [Recovering/Resolving]
  - Muscular weakness [Recovering/Resolving]
  - Pain in extremity [Recovering/Resolving]
  - Arthralgia [Recovering/Resolving]
